FAERS Safety Report 15153446 (Version 1)
Quarter: 2018Q3

REPORT INFORMATION
  Report Type: Spontaneous
  Country: CZ (occurrence: CZ)
  Receive Date: 20180717
  Receipt Date: 20180717
  Transmission Date: 20181010
  Serious: Yes (Other)
  Sender: FDA-Public Use
  Company Number: CZ-GUERBET-CZ-20180003

PATIENT
  Age: 31 Year
  Sex: Male

DRUGS (2)
  1. HISTOACRYL [Suspect]
     Active Substance: ENBUCRILATE
     Indication: THERAPEUTIC EMBOLISATION
     Route: 065
  2. LIPIODOL [Suspect]
     Active Substance: ETHIODIZED OIL
     Indication: THERAPEUTIC EMBOLISATION
     Route: 065

REACTIONS (2)
  - Product use in unapproved indication [Recovered/Resolved]
  - Muscle haemorrhage [Recovered/Resolved]
